FAERS Safety Report 8311501-8 (Version None)
Quarter: 2012Q2

REPORT INFORMATION
  Report Type: 
  Country: None (occurrence: None)
  Receive Date: 20120425
  Receipt Date: 20120416
  Transmission Date: 20120825
  Serious: Yes (Hospitalization, Other)
  Sender: FDA-Public Use
  Company Number: US-ASTRAZENECA-2011SE69694

PATIENT
  Age: 75 Year
  Sex: Female
  Weight: 48.7 kg

DRUGS (17)
  1. NEXIUM [Concomitant]
  2. AMLODIPINE [Concomitant]
     Route: 048
  3. LIDOCAINE [Suspect]
  4. TIOTROPIUM [Concomitant]
     Route: 055
  5. GABAPENTIN [Concomitant]
     Dates: end: 20110901
  6. ATENOLOL [Suspect]
     Route: 048
  7. OTHER [Suspect]
     Route: 065
  8. PULMICORT [Suspect]
     Indication: CHRONIC OBSTRUCTIVE PULMONARY DISEASE
     Route: 055
     Dates: end: 20110901
  9. OMEPRAZOLE [Suspect]
     Route: 048
  10. LOSARTAN POTASSIUM [Concomitant]
     Route: 048
  11. SPIRONOLACTONE [Concomitant]
     Route: 048
  12. ZOLEDRONIC [Concomitant]
     Route: 042
  13. SERTRALINE HYDROCHLORIDE [Suspect]
     Route: 048
  14. ALBUTEROL [Concomitant]
     Dosage: 90 MCG INHALER ONE TO TWO PUFFS PRN
  15. LORAZEPAM [Concomitant]
     Dates: end: 20110901
  16. IMDUR [Suspect]
     Route: 048
  17. ALBUTEROL [Concomitant]
     Indication: DYSPNOEA
     Dosage: 2.5 MG PER 3ML NEBULIZED ONE SPRAY INHALED 4 TIMES DAILY

REACTIONS (14)
  - ENCEPHALITIS HERPES [None]
  - MENTAL STATUS CHANGES [None]
  - CHRONIC OBSTRUCTIVE PULMONARY DISEASE [None]
  - HYPONATRAEMIA [None]
  - OSTEOARTHRITIS [None]
  - LUNG ADENOCARCINOMA STAGE I [None]
  - PNEUMONIA [None]
  - HYPERTENSION [None]
  - DIABETES MELLITUS [None]
  - RENAL FAILURE ACUTE [None]
  - HYPOKALAEMIA [None]
  - DEPRESSION [None]
  - HERPES ZOSTER [None]
  - GASTROOESOPHAGEAL REFLUX DISEASE [None]
